FAERS Safety Report 12845449 (Version 1)
Quarter: 2016Q4

REPORT INFORMATION
  Report Type: Spontaneous
  Country: US (occurrence: US)
  Receive Date: 20161013
  Receipt Date: 20161013
  Transmission Date: 20170207
  Serious: No
  Sender: FDA-Public Use
  Company Number: US-JAZZ-2016-US-013708

PATIENT
  Sex: Female

DRUGS (39)
  1. PHENERGAN [Suspect]
     Active Substance: PROMETHAZINE HYDROCHLORIDE
     Indication: PRODUCT USED FOR UNKNOWN INDICATION
     Dosage: UNK
     Route: 048
     Dates: start: 20120525, end: 2013
  2. VITAMIN D3 [Concomitant]
     Active Substance: CHOLECALCIFEROL
  3. TAURINE [Concomitant]
     Active Substance: TAURINE
  4. COENZYME Q10 [Concomitant]
     Active Substance: UBIDECARENONE
  5. METHYLCOBALAMINE [Concomitant]
  6. FERROUS SULFATE. [Concomitant]
     Active Substance: FERROUS SULFATE
  7. BUPROPION HCL [Concomitant]
     Active Substance: BUPROPION HYDROCHLORIDE
  8. DUEXIS [Concomitant]
     Active Substance: FAMOTIDINE\IBUPROFEN
  9. MAGNESIUM CITRATE. [Concomitant]
     Active Substance: MAGNESIUM CITRATE
  10. DHEA [Concomitant]
     Active Substance: PRASTERONE
  11. ALPHA LIPOIC ACID [Concomitant]
     Active Substance: .ALPHA.-LIPOIC ACID
  12. LAMISIL [Concomitant]
     Active Substance: TERBINAFINE HYDROCHLORIDE
  13. CYTOMEL [Concomitant]
     Active Substance: LIOTHYRONINE SODIUM
  14. ZINC GLUCONATE [Concomitant]
     Active Substance: ZINC GLUCONATE
  15. XYREM [Suspect]
     Active Substance: SODIUM OXYBATE
     Dosage: 6 G, FIRST DOSE
     Route: 048
     Dates: start: 201601
  16. PROGESTERONE. [Concomitant]
     Active Substance: PROGESTERONE
  17. SELENIUM [Concomitant]
     Active Substance: SELENIUM
  18. LOVAZA [Concomitant]
     Active Substance: OMEGA-3-ACID ETHYL ESTERS
  19. PROVIGIL [Concomitant]
     Active Substance: MODAFINIL
  20. CAMBIA [Concomitant]
     Active Substance: DICLOFENAC POTASSIUM
  21. PHOSPHATIDYL SERINE [Concomitant]
     Active Substance: PHOSPHATIDYL SERINE
  22. TRAZODONE [Concomitant]
     Active Substance: TRAZODONE HYDROCHLORIDE
  23. XYREM [Suspect]
     Active Substance: SODIUM OXYBATE
     Dosage: 4.5 G, SECOND DOSE
     Route: 048
     Dates: start: 201601
  24. DIGESTIVE ENZYMES [Concomitant]
     Active Substance: UNSPECIFIED INGREDIENT
  25. VITAMIN B-COMPLEX VITAMIN C [Concomitant]
  26. METFORMIN HCL [Concomitant]
     Active Substance: METFORMIN HYDROCHLORIDE
  27. CYCLOBENZAPRINE [Concomitant]
     Active Substance: CYCLOBENZAPRINE
  28. FOLIC ACID. [Concomitant]
     Active Substance: FOLIC ACID
  29. RELPAX [Concomitant]
     Active Substance: ELETRIPTAN HYDROBROMIDE
  30. VALSARTAN. [Concomitant]
     Active Substance: VALSARTAN
  31. XYREM [Suspect]
     Active Substance: SODIUM OXYBATE
     Indication: SOMNOLENCE
     Dosage: 2.25 G, BID
     Route: 048
     Dates: start: 201307, end: 201308
  32. RESTASIS [Concomitant]
     Active Substance: CYCLOSPORINE
  33. OCELLA [Concomitant]
     Active Substance: DROSPIRENONE\ETHINYL ESTRADIOL
  34. VASCEPA [Concomitant]
     Active Substance: ICOSAPENT ETHYL
  35. XYREM [Suspect]
     Active Substance: SODIUM OXYBATE
     Dosage: DOSE ADJUSTMENTS
     Route: 048
     Dates: start: 201308, end: 201601
  36. BROCCOLI. [Concomitant]
     Active Substance: BROCCOLI
  37. THEANINE [Concomitant]
     Active Substance: THEANINE
  38. MELATONIN [Concomitant]
     Active Substance: MELATONIN
  39. LEVOTHYROXINE. [Concomitant]
     Active Substance: LEVOTHYROXINE

REACTIONS (1)
  - Somnolence [Unknown]
